FAERS Safety Report 4332647-5 (Version None)
Quarter: 2004Q1

REPORT INFORMATION
  Report Type: 
  Country: None (occurrence: None)
  Receive Date: 20040330
  Receipt Date: 20040312
  Transmission Date: 20041129
  Serious: Yes (Death)
  Sender: FDA-Public Use
  Company Number: M2004.7022

PATIENT
  Age: 32 Year
  Sex: Male
  Weight: 49 kg

DRUGS (1)
  1. RIMSTAR 4-D (4-D T37080+TAB) UNK MANUFACTURER [Suspect]
     Indication: PULMONARY TUBERCULOSIS

REACTIONS (3)
  - CONVULSION [None]
  - FOOD ALLERGY [None]
  - SUDDEN DEATH [None]
